FAERS Safety Report 8341893-5 (Version None)
Quarter: 2012Q2

REPORT INFORMATION
  Report Type: 
  Country: None (occurrence: None)
  Receive Date: 20120507
  Receipt Date: 20120501
  Transmission Date: 20120825
  Serious: Yes (Other)
  Sender: FDA-Public Use
  Company Number: US-PFIZER INC-2012107372

PATIENT
  Sex: Male
  Weight: 99.773 kg

DRUGS (9)
  1. CELEXA [Concomitant]
     Indication: DEPRESSION
     Dosage: UNK
  2. LAMICTAL [Concomitant]
     Indication: DEPRESSION
     Dosage: UNK
  3. PREVACID [Concomitant]
     Dosage: UNK
  4. AFRIN [Concomitant]
     Indication: NASAL CONGESTION
     Dosage: UNK
     Route: 045
  5. PAXIL [Concomitant]
     Indication: DEPRESSION
     Dosage: UNK
  6. PROVIGIL [Concomitant]
     Indication: DEPRESSION
     Dosage: UNK
  7. EFFEXOR [Concomitant]
     Indication: DEPRESSION
     Dosage: UNK
  8. WELLBUTRIN [Concomitant]
     Indication: DEPRESSION
     Dosage: UNK
  9. VIAGRA [Suspect]
     Indication: ERECTILE DYSFUNCTION
     Dosage: 50 MG, AS NEEDED
     Route: 048

REACTIONS (1)
  - SLEEP APNOEA SYNDROME [None]
